FAERS Safety Report 17643359 (Version 2)
Quarter: 2021Q2

REPORT INFORMATION
  Report Type: Spontaneous
  Country: US (occurrence: US)
  Receive Date: 20200408
  Receipt Date: 20210409
  Transmission Date: 20210716
  Serious: No
  Sender: FDA-Public Use
  Company Number: US-ALLERGAN-2007220US

PATIENT
  Sex: Female

DRUGS (1)
  1. LILETTA [Suspect]
     Active Substance: LEVONORGESTREL
     Indication: CONTRACEPTION
     Dosage: 52 MG, SINGLE
     Route: 015
     Dates: start: 20191227, end: 20200204

REACTIONS (5)
  - Depression [Recovering/Resolving]
  - Crying [Recovering/Resolving]
  - Intermenstrual bleeding [Recovering/Resolving]
  - Mood altered [Recovering/Resolving]
  - Affect lability [Recovering/Resolving]
